FAERS Safety Report 9803368 (Version 2)
Quarter: 2014Q1

REPORT INFORMATION
  Report Type: Spontaneous
  Country: PT (occurrence: PT)
  Receive Date: 20140108
  Receipt Date: 20140122
  Transmission Date: 20141002
  Serious: Yes (Hospitalization, Other)
  Sender: FDA-Public Use
  Company Number: PHHY2014PT001650

PATIENT
  Age: 45 Year
  Sex: Female

DRUGS (4)
  1. GILENYA [Suspect]
     Indication: MULTIPLE SCLEROSIS
     Route: 048
  2. PARKADINA [Concomitant]
  3. BUPROPION [Concomitant]
  4. ZYBAN [Concomitant]

REACTIONS (34)
  - Grand mal convulsion [Unknown]
  - Oromandibular dystonia [Unknown]
  - Loss of consciousness [Unknown]
  - Pupillary reflex impaired [Unknown]
  - Salivary hypersecretion [Unknown]
  - Aphasia [Unknown]
  - Miosis [Unknown]
  - Partial seizures [Unknown]
  - C-reactive protein increased [Unknown]
  - Mean cell haemoglobin concentration decreased [Unknown]
  - Blood glucose increased [Unknown]
  - PO2 decreased [Unknown]
  - Blood calcium decreased [Unknown]
  - Blood magnesium decreased [Unknown]
  - Blood creatine phosphokinase increased [Unknown]
  - Blood bicarbonate increased [Unknown]
  - Fluid retention [Unknown]
  - Haematocrit decreased [Unknown]
  - Blood potassium decreased [Unknown]
  - Protein urine present [Unknown]
  - Glucose urine present [Unknown]
  - Urine ketone body present [Unknown]
  - Red blood cells urine positive [Unknown]
  - CSF glucose increased [Unknown]
  - Nitrite urine present [Unknown]
  - Ventricular hypertrophy [Unknown]
  - Increased bronchial secretion [Unknown]
  - Ear discomfort [Unknown]
  - Central nervous system lesion [Unknown]
  - PO2 increased [Unknown]
  - Haemoglobin decreased [Unknown]
  - Systolic hypertension [Unknown]
  - Lymphocyte count decreased [Unknown]
  - Neutrophil count increased [Unknown]
